FAERS Safety Report 8431792-2 (Version None)
Quarter: 2012Q2

REPORT INFORMATION
  Report Type: 
  Country: None (occurrence: None)
  Receive Date: 20120613
  Receipt Date: 20120606
  Transmission Date: 20120825
  Serious: No
  Sender: FDA-Public Use
  Company Number: US-PFIZER INC-2012136970

PATIENT
  Sex: Female

DRUGS (1)
  1. PROTONIX [Suspect]
     Indication: REFLUX LARYNGITIS
     Dosage: 40 MG, 2X/DAY

REACTIONS (1)
  - HYPOMAGNESAEMIA [None]
